FAERS Safety Report 18555001 (Version 1)
Quarter: 2020Q4

REPORT INFORMATION
  Report Type: Spontaneous
  Country: GB (occurrence: GB)
  Receive Date: 20201127
  Receipt Date: 20201127
  Transmission Date: 20210114
  Serious: Yes (Disabling, Other)
  Sender: FDA-Public Use
  Company Number: GB-SAMSUNG BIOEPIS-SB-2020-35334

PATIENT
  Age: 43 Year
  Sex: Female
  Weight: 117 kg

DRUGS (4)
  1. ERYTHROMYCIN. [Concomitant]
     Active Substance: ERYTHROMYCIN
     Indication: PRODUCT USED FOR UNKNOWN INDICATION
     Route: 065
     Dates: start: 20200720, end: 20200818
  2. ADALIMUMAB [Suspect]
     Active Substance: ADALIMUMAB
     Indication: PRODUCT USED FOR UNKNOWN INDICATION
     Dosage: UNKNOWN?20MG/0.2ML
     Route: 065
     Dates: start: 20200122, end: 20201014
  3. FOLIC ACID. [Concomitant]
     Active Substance: FOLIC ACID
     Indication: PRODUCT USED FOR UNKNOWN INDICATION
     Dosage: AS ADVISED BY CONSULTANT
     Route: 065
     Dates: start: 20200911
  4. CLOBETASONE [Concomitant]
     Active Substance: CLOBETASONE
     Indication: PRODUCT USED FOR UNKNOWN INDICATION
     Dosage: APPLY FOR UP TO 4 WEEKS TO FACE 30 G
     Route: 065
     Dates: start: 20200720, end: 20200911

REACTIONS (9)
  - Vision blurred [Unknown]
  - Demyelination [Not Recovered/Not Resolved]
  - Paraesthesia [Unknown]
  - Anal incontinence [Unknown]
  - Headache [Recovered/Resolved]
  - Product use issue [Unknown]
  - Urinary incontinence [Unknown]
  - Spinal osteoarthritis [Unknown]
  - Disorientation [Unknown]

NARRATIVE: CASE EVENT DATE: 20200302
